FAERS Safety Report 13534989 (Version 1)
Quarter: 2017Q2

REPORT INFORMATION
  Report Type: Spontaneous
  Country: US (occurrence: US)
  Receive Date: 20170511
  Receipt Date: 20170511
  Transmission Date: 20170830
  Serious: No
  Sender: FDA-Public Use
  Company Number: US-TEVA-754844ACC

PATIENT
  Sex: Female

DRUGS (1)
  1. CARISTAB-A [Suspect]
     Active Substance: CARISOPRODOL
     Indication: MUSCLE SPASMS

REACTIONS (3)
  - Restless legs syndrome [Unknown]
  - Dyskinesia [Unknown]
  - Dyskinesia [None]
